FAERS Safety Report 5795334-2 (Version None)
Quarter: 2008Q2

REPORT INFORMATION
  Report Type: 
  Country: None (occurrence: None)
  Receive Date: 20080630
  Receipt Date: 20080616
  Transmission Date: 20081010
  Serious: Yes (Life-Threatening, Hospitalization)
  Sender: FDA-Public Use
  Company Number: DE-JNJFOC-20080606661

PATIENT
  Age: 51 Year
  Sex: Female

DRUGS (5)
  1. IBUROFEN [Suspect]
     Indication: DRUG USE FOR UNKNOWN INDICATION
  2. IFN-B [Suspect]
     Indication: MULTIPLE SCLEROSIS
     Route: 065
  3. SIMVASTATIN [Suspect]
     Indication: LIPIDS INCREASED
  4. SERTRALIN [Concomitant]
     Indication: ANTIDEPRESSANT THERAPY
  5. LORAZEPAM [Concomitant]
     Indication: ANTIDEPRESSANT THERAPY

REACTIONS (2)
  - ACUTE HEPATIC FAILURE [None]
  - AUTOIMMUNE HEPATITIS [None]
